FAERS Safety Report 20698160 (Version 3)
Quarter: 2025Q1

REPORT INFORMATION
  Report Type: Spontaneous
  Country: US (occurrence: US)
  Receive Date: 20220412
  Receipt Date: 20250212
  Transmission Date: 20250408
  Serious: Yes (Other)
  Sender: SANOFI AVENTIS
  Company Number: US-SA-SAC20220408001578

PATIENT
  Sex: Female

DRUGS (17)
  1. DUPIXENT [Suspect]
     Active Substance: DUPILUMAB
     Indication: Dermatitis atopic
     Dosage: 300 MG, QOW
     Route: 058
     Dates: start: 20240706
  2. ENTRESTO [Concomitant]
     Active Substance: SACUBITRIL\VALSARTAN
     Dosage: UNK, BID
  3. FUROSEMIDE [Concomitant]
     Active Substance: FUROSEMIDE
  4. JARDIANCE [Concomitant]
     Active Substance: EMPAGLIFLOZIN
  5. MIDODRINE [Concomitant]
     Active Substance: MIDODRINE
  6. MISOPROSTOL [Concomitant]
     Active Substance: MISOPROSTOL
  7. ESZOPICLONE [Concomitant]
     Active Substance: ESZOPICLONE
  8. ESCITALOPRAM [Concomitant]
     Active Substance: ESCITALOPRAM OXALATE
  9. METOPROLOL SUCCINATE [Concomitant]
     Active Substance: METOPROLOL SUCCINATE
  10. ACYCLOVIR [Concomitant]
     Active Substance: ACYCLOVIR
  11. DIGOXIN [Concomitant]
     Active Substance: DIGOXIN
  12. CARVEDILOL [Concomitant]
     Active Substance: CARVEDILOL
  13. ALPRAZOLAM [Concomitant]
     Active Substance: ALPRAZOLAM
  14. BUPROPION HYDROCHLORIDE XL [Concomitant]
     Active Substance: BUPROPION HYDROCHLORIDE
  15. BUPROPION HYDROCHLORIDE XL [Concomitant]
     Active Substance: BUPROPION HYDROCHLORIDE
  16. DIGOXIN [Concomitant]
     Active Substance: DIGOXIN
  17. MEGESTROL ACETATE [Concomitant]
     Active Substance: MEGESTROL ACETATE

REACTIONS (5)
  - Cardiac failure [Recovering/Resolving]
  - Cardiomyopathy [Recovering/Resolving]
  - Blood pressure decreased [Recovering/Resolving]
  - Sleep disorder due to a general medical condition [Unknown]
  - Intentional dose omission [Unknown]
